FAERS Safety Report 23822311 (Version 1)
Quarter: 2024Q2

REPORT INFORMATION
  Report Type: Spontaneous
  Country: US (occurrence: US)
  Receive Date: 20240506
  Receipt Date: 20240506
  Transmission Date: 20240716
  Serious: Yes (Other)
  Sender: FDA-Public Use
  Company Number: US-ABBVIE-5742336

PATIENT
  Sex: Female

DRUGS (3)
  1. HUMIRA [Suspect]
     Active Substance: ADALIMUMAB
     Indication: Rheumatoid arthritis
     Route: 058
  2. METHOTREXATE [Concomitant]
     Active Substance: METHOTREXATE
     Indication: Product used for unknown indication
  3. PROVERA [Concomitant]
     Active Substance: MEDROXYPROGESTERONE ACETATE
     Indication: Product used for unknown indication

REACTIONS (11)
  - Coronary artery occlusion [Unknown]
  - Breast cancer female [Unknown]
  - Hepatic cirrhosis [Unknown]
  - Drug ineffective [Unknown]
  - Drug specific antibody present [Unknown]
  - Diabetes mellitus [Unknown]
  - Tobacco user [Unknown]
  - Chronic obstructive pulmonary disease [Unknown]
  - Liver disorder [Unknown]
  - Cardiac disorder [Unknown]
  - Haematological malignancy [Unknown]

NARRATIVE: CASE EVENT DATE: 20220101
